FAERS Safety Report 10040096 (Version 1)
Quarter: 2014Q1

REPORT INFORMATION
  Report Type: Spontaneous
  Country: US (occurrence: US)
  Receive Date: 20140326
  Receipt Date: 20140326
  Transmission Date: 20141002
  Serious: Yes (Other)
  Sender: FDA-Public Use
  Company Number: PHEH2014US005741

PATIENT
  Sex: Male

DRUGS (5)
  1. EXFORGE [Suspect]
     Dosage: 1 DF (160/10 MG), BID  (ONE IN THE MORNING AND ONE IN THE EVENING)
  2. EXFORGE [Suspect]
     Dosage: UNK UKN, UNK
  3. GINKGO BILOBA [Concomitant]
     Dosage: UNK UKN, UNK
  4. GINKGO BILOBA [Concomitant]
     Dosage: UNK UKN, UNK
  5. B12//CYANOCOBALAMIN [Concomitant]
     Dosage: UNK UKN, UNK

REACTIONS (4)
  - Dementia Alzheimer^s type [Unknown]
  - Memory impairment [Unknown]
  - Rash [Unknown]
  - Pruritus [Unknown]
